FAERS Safety Report 12063253 (Version 2)
Quarter: 2016Q4

REPORT INFORMATION
  Report Type: Spontaneous
  Country: US (occurrence: US)
  Receive Date: 20160210
  Receipt Date: 20161006
  Transmission Date: 20170206
  Serious: No
  Sender: FDA-Public Use
  Company Number: US-TEVA-633150USA

PATIENT
  Age: 73 Year
  Sex: Female

DRUGS (3)
  1. COPAXONE [Suspect]
     Active Substance: GLATIRAMER ACETATE
  2. PENICILLIN [Concomitant]
     Active Substance: PENICILLIN
  3. BUTORPHANOL [Concomitant]
     Active Substance: BUTORPHANOL

REACTIONS (4)
  - Hyperhidrosis [Recovered/Resolved]
  - Headache [Recovered/Resolved]
  - Vomiting [Recovered/Resolved]
  - Adverse drug reaction [Unknown]

NARRATIVE: CASE EVENT DATE: 20140701
